FAERS Safety Report 9277172 (Version 1)
Quarter: 2013Q2

REPORT INFORMATION
  Report Type: Report from Study
  Country: GB (occurrence: GB)
  Receive Date: 20130508
  Receipt Date: 20130508
  Transmission Date: 20140414
  Serious: Yes (Hospitalization)
  Sender: FDA-Public Use
  Company Number: GB-ROCHE-1221088

PATIENT
  Age: 69 Year
  Sex: Male
  Weight: 67.9 kg

DRUGS (4)
  1. BEVACIZUMAB [Suspect]
     Indication: GASTRIC CANCER
     Dosage: MOST RECENT DOSE:512.5 MG
     Route: 042
     Dates: start: 20130409
  2. EPIRUBICIN [Suspect]
     Indication: GASTRIC CANCER
     Dosage: LAST DOSE ADMINISTERED:89 MG
     Route: 042
     Dates: start: 20130409
  3. CISPLATIN [Suspect]
     Indication: GASTRIC CANCER
     Dosage: LAST DOSE ADMINISTERED:112 MG
     Route: 042
     Dates: start: 20130409
  4. CAPECITABINE [Suspect]
     Indication: GASTRIC CANCER
     Dosage: LAST DOSE ADMINISTERED:12/APR/2013, LAST DOSE:1150 MG
     Route: 048
     Dates: start: 20130409

REACTIONS (1)
  - Dysphagia [Not Recovered/Not Resolved]
